FAERS Safety Report 9476370 (Version 1)
Quarter: 2013Q3

REPORT INFORMATION
  Report Type: Spontaneous
  Country: AU (occurrence: AU)
  Receive Date: 20130826
  Receipt Date: 20130826
  Transmission Date: 20140515
  Serious: Yes (Life-Threatening, Hospitalization)
  Sender: FDA-Public Use
  Company Number: AU-ASTRAZENECA-2013SE64254

PATIENT
  Age: 45 Year
  Sex: 0

DRUGS (4)
  1. PROPOFOL [Suspect]
     Route: 042
     Dates: start: 20130618
  2. FENTANYL [Suspect]
     Route: 042
     Dates: start: 20130618
  3. CEPHAZOLIN SODIUM [Suspect]
     Route: 042
     Dates: start: 20130618
  4. MIDAZOLAM [Suspect]
     Route: 042
     Dates: start: 20130618

REACTIONS (4)
  - Oxygen saturation decreased [Recovered/Resolved]
  - Anaphylactic reaction [Recovered/Resolved]
  - Bronchospasm [Recovered/Resolved]
  - Hypotension [Recovered/Resolved]
